FAERS Safety Report 8174711-9 (Version None)
Quarter: 2012Q1

REPORT INFORMATION
  Report Type: 
  Country: None (occurrence: None)
  Receive Date: 20120229
  Receipt Date: 20120227
  Transmission Date: 20120608
  Serious: Yes (Death)
  Sender: FDA-Public Use
  Company Number: US-GLAXOSMITHKLINE-A0967918A

PATIENT
  Age: 64 Year
  Sex: Male
  Weight: 68.2 kg

DRUGS (6)
  1. PACLITAXEL [Suspect]
     Indication: THYROID CANCER
     Route: 042
     Dates: start: 20110512, end: 20110512
  2. ZOCOR [Concomitant]
  3. VOTRIENT [Suspect]
     Indication: THYROID CANCER
     Dosage: 800MG PER DAY
     Route: 048
     Dates: start: 20110512, end: 20110515
  4. FLONASE [Concomitant]
  5. ZOLOFT [Concomitant]
  6. ASTELIN [Concomitant]

REACTIONS (1)
  - DEATH [None]
